FAERS Safety Report 17523568 (Version 3)
Quarter: 2020Q3

REPORT INFORMATION
  Report Type: Spontaneous
  Country: US (occurrence: US)
  Receive Date: 20200310
  Receipt Date: 20200813
  Transmission Date: 20201102
  Serious: No
  Sender: FDA-Public Use
  Company Number: US-PFIZER INC-2015140941

PATIENT
  Age: 53 Year
  Sex: Female
  Weight: 61 kg

DRUGS (9)
  1. LYRICA [Suspect]
     Active Substance: PREGABALIN
     Indication: BACK PAIN
     Dosage: 100 MG, 2X/DAY
     Route: 048
     Dates: start: 20150929
  2. LYRICA [Suspect]
     Active Substance: PREGABALIN
     Indication: ARTHRITIS
     Dosage: 100 MG, UNK (TOOK ONE CAPSULE )
     Dates: start: 20200306
  3. PREDNISONE. [Concomitant]
     Active Substance: PREDNISONE
     Dosage: UNK
  4. ULTRAM [Concomitant]
     Active Substance: TRAMADOL HYDROCHLORIDE
     Indication: ARTHRALGIA
     Dosage: 50 MG, AS NEEDED [EVERY SIX HOURS, AS NEEDED]
     Dates: start: 20151111
  5. ORPHENADRINE CITRATE. [Concomitant]
     Active Substance: ORPHENADRINE CITRATE
     Indication: ARTHRALGIA
     Dosage: 100 MG, 2X/DAY [1 TABLET ER 12HR]
     Dates: start: 20151111
  6. MOBIC [Concomitant]
     Active Substance: MELOXICAM
     Indication: ARTHRALGIA
     Dosage: 15 MG, DAILY
     Dates: start: 20151111
  7. LYRICA [Suspect]
     Active Substance: PREGABALIN
     Indication: INTERVERTEBRAL DISC PROTRUSION
     Dosage: 200 MG, UNK (TOOK TWO CAPSULES)
     Dates: start: 20200305, end: 202003
  8. FAMOTIDINE. [Concomitant]
     Active Substance: FAMOTIDINE
     Indication: GASTROOESOPHAGEAL REFLUX DISEASE
     Dosage: 20 MG, DAILY
     Dates: start: 20151111
  9. LYRICA [Suspect]
     Active Substance: PREGABALIN
     Indication: ARTHRALGIA
     Dosage: 100 MG, 3X/DAY
     Route: 048

REACTIONS (5)
  - Pruritus [Not Recovered/Not Resolved]
  - Neuralgia [Recovered/Resolved]
  - Pain [Recovered/Resolved]
  - Withdrawal syndrome [Recovered/Resolved]
  - Intentional product use issue [Unknown]

NARRATIVE: CASE EVENT DATE: 201903
